FAERS Safety Report 11746671 (Version 1)
Quarter: 2015Q4

REPORT INFORMATION
  Report Type: Spontaneous
  Country: US (occurrence: US)
  Receive Date: 20151117
  Receipt Date: 20151117
  Transmission Date: 20160304
  Serious: No
  Sender: FDA-Public Use
  Company Number: US-PERRIGO-15US003827

PATIENT
  Sex: Female

DRUGS (2)
  1. ERYTHROMYCIN OPHTHALMIC USP 0.5% 5W7 [Suspect]
     Active Substance: ERYTHROMYCIN
     Indication: FUNGAL INFECTION
     Dosage: UNKNOWN, UNKNOWN
     Route: 047
     Dates: start: 201503, end: 201503
  2. ERYTHROMYCIN OPHTHALMIC USP 0.5% 5W7 [Suspect]
     Active Substance: ERYTHROMYCIN
     Indication: BACTERIAL INFECTION
     Dosage: UNKNOWN, UNKNOWN
     Route: 061
     Dates: start: 201504, end: 20150404

REACTIONS (5)
  - Eyelid oedema [Not Recovered/Not Resolved]
  - Eyelid exfoliation [Not Recovered/Not Resolved]
  - Off label use [Recovered/Resolved]
  - Eyelid infection [Not Recovered/Not Resolved]
  - Drug administered at inappropriate site [Recovered/Resolved]

NARRATIVE: CASE EVENT DATE: 201504
